FAERS Safety Report 8473272-4 (Version None)
Quarter: 2012Q2

REPORT INFORMATION
  Report Type: 
  Country: None (occurrence: None)
  Receive Date: 20120627
  Receipt Date: 20120621
  Transmission Date: 20120825
  Serious: Yes (Other)
  Sender: FDA-Public Use
  Company Number: CA-ABBOTT-12P-028-0948951-00

PATIENT
  Sex: Male
  Weight: 76.726 kg

DRUGS (1)
  1. LUPRON DEPOT [Suspect]
     Indication: PROSTATE CANCER
     Route: 030
     Dates: start: 20110901

REACTIONS (4)
  - ABASIA [None]
  - THROMBOSIS [None]
  - OEDEMA PERIPHERAL [None]
  - PAIN [None]
